FAERS Safety Report 4632627-6 (Version None)
Quarter: 2005Q2

REPORT INFORMATION
  Report Type: 
  Country: None (occurrence: None)
  Receive Date: 20050331
  Receipt Date: 20040813
  Transmission Date: 20051028
  Serious: Yes (Other)
  Sender: FDA-Public Use
  Company Number: 200414001BCC

PATIENT
  Age: 43 Year
  Sex: Female
  Weight: 50.8029 kg

DRUGS (2)
  1. ALEVE [Suspect]
     Indication: TOOTHACHE
     Dosage: 220 MG, TID, ORAL
     Route: 048
     Dates: start: 20040806, end: 20040813
  2. ASPIRIN [Suspect]
     Indication: TOOTHACHE
     Dosage: 325 MG, TID, ORAL
     Route: 048
     Dates: start: 20040810

REACTIONS (2)
  - DIARRHOEA [None]
  - HAEMATOCHEZIA [None]
